FAERS Safety Report 16119427 (Version 1)
Quarter: 2019Q1

REPORT INFORMATION
  Report Type: Spontaneous
  Country: US (occurrence: US)
  Receive Date: 20190326
  Receipt Date: 20190326
  Transmission Date: 20190418
  Serious: Yes (Hospitalization)
  Sender: FDA-Public Use
  Company Number: US-TAKEDA-2019TUS017109

PATIENT
  Age: 53 Year
  Sex: Male
  Weight: 86.18 kg

DRUGS (1)
  1. ENTYVIO [Suspect]
     Active Substance: VEDOLIZUMAB
     Indication: COLITIS ULCERATIVE
     Dosage: 300 MILLILITER
     Route: 042
     Dates: start: 201708

REACTIONS (5)
  - Stent placement [Recovered/Resolved]
  - Vision blurred [Not Recovered/Not Resolved]
  - Vomiting [Not Recovered/Not Resolved]
  - Dizziness [Unknown]
  - Product dose omission [Unknown]

NARRATIVE: CASE EVENT DATE: 201705
